FAERS Safety Report 7657371-2 (Version None)
Quarter: 2011Q3

REPORT INFORMATION
  Report Type: 
  Country: None (occurrence: None)
  Receive Date: 20110804
  Receipt Date: 20110801
  Transmission Date: 20111222
  Serious: Yes (Other)
  Sender: FDA-Public Use
  Company Number: US-PFIZER INC-2011176058

PATIENT
  Age: 8 Year
  Sex: Female

DRUGS (2)
  1. LYRICA [Suspect]
     Dosage: 75MG 1 CAPSULE
  2. LYRICA [Suspect]
     Dosage: 25MG 3 CAPSULES AT A TIME

REACTIONS (1)
  - AGGRESSION [None]
